FAERS Safety Report 18032098 (Version 1)
Quarter: 2020Q3

REPORT INFORMATION
  Report Type: Spontaneous
  Country: US (occurrence: US)
  Receive Date: 20200716
  Receipt Date: 20200716
  Transmission Date: 20201103
  Serious: Yes (Hospitalization)
  Sender: FDA-Public Use
  Company Number: None

PATIENT
  Age: 77 Year
  Sex: Male

DRUGS (10)
  1. ZYTIGA [Suspect]
     Active Substance: ABIRATERONE ACETATE
     Indication: PROSTATE CANCER
     Route: 048
     Dates: start: 20191130
  2. ONDANSETRON [Concomitant]
     Active Substance: ONDANSETRON
  3. CALCITRIOL. [Concomitant]
     Active Substance: CALCITRIOL
  4. PREDNISONE. [Concomitant]
     Active Substance: PREDNISONE
  5. LEVEMIR [Concomitant]
     Active Substance: INSULIN DETEMIR
  6. MIDODRINE [Concomitant]
     Active Substance: MIDODRINE
  7. DOK [Concomitant]
     Active Substance: DOCUSATE SODIUM
  8. ACETAMINOPHEN. [Concomitant]
     Active Substance: ACETAMINOPHEN
  9. DRONABINOL. [Concomitant]
     Active Substance: DRONABINOL
  10. CARVEDILOL. [Concomitant]
     Active Substance: CARVEDILOL

REACTIONS (3)
  - Product availability issue [None]
  - Product dose omission issue [None]
  - Pneumonia [None]
